FAERS Safety Report 6418549-9 (Version None)
Quarter: 2009Q4

REPORT INFORMATION
  Report Type: 
  Country: None (occurrence: None)
  Receive Date: 20091021
  Receipt Date: 20090720
  Transmission Date: 20100525
  Serious: No
  Sender: FDA-Public Use
  Company Number: ALL1-2009-01985

PATIENT
  Sex: Female
  Weight: 56.7 kg

DRUGS (4)
  1. VYVANSE [Suspect]
     Indication: ATTENTION DEFICIT/HYPERACTIVITY DISORDER
     Dosage: 70 MG, 1X/DAY:QD, ORAL
     Route: 048
     Dates: start: 20090101
  2. LORTAB [Concomitant]
  3. MORPHINE [Concomitant]
  4. VALIUM [Concomitant]

REACTIONS (1)
  - STAPHYLOCOCCAL INFECTION [None]
